FAERS Safety Report 6656244-1 (Version None)
Quarter: 2010Q1

REPORT INFORMATION
  Report Type: 
  Country: None (occurrence: None)
  Receive Date: 20100326
  Receipt Date: 20100326
  Transmission Date: 20100710
  Serious: Yes (Other)
  Sender: FDA-Public Use
  Company Number: None

PATIENT
  Sex: Female
  Weight: 51.2 kg

DRUGS (2)
  1. AROMASIN [Suspect]
     Indication: BREAST CANCER
     Dosage: 25 MG DAILY PO
     Route: 048
     Dates: start: 20090108, end: 20100103
  2. AROMASIN [Suspect]
     Indication: CANCER IN REMISSION
     Dosage: 25 MG DAILY PO
     Route: 048
     Dates: start: 20090108, end: 20100103

REACTIONS (1)
  - TENDONITIS [None]
